FAERS Safety Report 6186148-2 (Version None)
Quarter: 2009Q2

REPORT INFORMATION
  Report Type: 
  Country: None (occurrence: None)
  Receive Date: 20090511
  Receipt Date: 20090507
  Transmission Date: 20091009
  Serious: Yes (Hospitalization, Disabling)
  Sender: FDA-Public Use
  Company Number: ZA-BRISTOL-MYERS SQUIBB COMPANY-13647581

PATIENT
  Age: 80 Year
  Sex: Male
  Weight: 85 kg

DRUGS (16)
  1. IRBESARTAN [Suspect]
     Indication: HYPERTENSION
     Dates: start: 20031201, end: 20080815
  2. BLINDED: PLACEBO [Suspect]
     Indication: HYPERTENSION
     Dates: start: 20031201, end: 20080815
  3. WARFARIN SODIUM [Suspect]
     Indication: PROPHYLAXIS
     Dosage: STOPPED ON UNKNOWN DATE AND RESTARTED ON 16-JAN-2007.
     Dates: start: 20031201
  4. LANOXIN [Concomitant]
  5. CALCIUM ACETATE [Concomitant]
  6. BEZAFIBRATE [Concomitant]
  7. DOBUTREX [Concomitant]
  8. EPREX [Concomitant]
  9. VANCOMYCIN HCL [Concomitant]
  10. TAZOCIN [Concomitant]
  11. OMNOPON [Concomitant]
  12. PERINDOPRIL ERBUMINE [Concomitant]
  13. STEMETIL [Concomitant]
  14. MORPHINE [Concomitant]
  15. VOLTAREN [Concomitant]
  16. NEXIUM [Concomitant]

REACTIONS (2)
  - INGUINAL HERNIA [None]
  - RETROPERITONEAL HAEMATOMA [None]
